FAERS Safety Report 4426394-9 (Version None)
Quarter: 2004Q3

REPORT INFORMATION
  Report Type: 
  Country: None (occurrence: None)
  Receive Date: 20040811
  Receipt Date: 20040727
  Transmission Date: 20050211
  Serious: Yes (Other)
  Sender: FDA-Public Use
  Company Number: DE_040714045

PATIENT
  Age: 78 Year
  Sex: Male

DRUGS (2)
  1. VANCOMYCIN [Suspect]
     Indication: STAPHYLOCOCCAL INFECTION
  2. VANCOMYCIN [Suspect]
     Indication: WOUND

REACTIONS (4)
  - DERMATITIS BULLOUS [None]
  - EXANTHEM [None]
  - PSEUDOMONAS INFECTION [None]
  - PULMONARY OEDEMA [None]
